FAERS Safety Report 9483688 (Version 2)
Quarter: 2013Q3

REPORT INFORMATION
  Report Type: Report from Study
  Country: CA (occurrence: CA)
  Receive Date: 20130828
  Receipt Date: 20130911
  Transmission Date: 20140515
  Serious: Yes (Hospitalization, Other)
  Sender: FDA-Public Use
  Company Number: CA-JNJFOC-20130814151

PATIENT
  Sex: Female

DRUGS (7)
  1. REMICADE [Suspect]
     Indication: CROHN^S DISEASE
     Dosage: LAST INFUSION
     Route: 042
     Dates: start: 20130703
  2. REMICADE [Suspect]
     Indication: CROHN^S DISEASE
     Route: 042
     Dates: start: 20031028
  3. VENLAFAXINE [Concomitant]
     Route: 065
  4. PANTOPRAZOLE [Concomitant]
     Route: 065
  5. CILAZAPRIL [Concomitant]
     Route: 065
  6. SPIRONOLACTONE [Concomitant]
     Route: 065
  7. EFFEXOR [Concomitant]
     Route: 065

REACTIONS (11)
  - Cardiac disorder [Unknown]
  - Palpitations [Unknown]
  - Bone lesion [Unknown]
  - Dyspnoea [Unknown]
  - Bone cancer [Unknown]
  - Hospitalisation [Unknown]
  - Lung neoplasm malignant [Unknown]
  - Hypotension [Unknown]
  - Dizziness [Unknown]
  - Anxiety [Unknown]
  - Diarrhoea [Recovering/Resolving]
